FAERS Safety Report 4301637-0 (Version None)
Quarter: 2004Q1

REPORT INFORMATION
  Report Type: 
  Country: None (occurrence: None)
  Receive Date: 20040223
  Receipt Date: 20040212
  Transmission Date: 20041129
  Serious: Yes (Other)
  Sender: FDA-Public Use
  Company Number: CH-BRISTOL-MYERS SQUIBB COMPANY-12510277

PATIENT
  Age: 80 Year
  Sex: Male

DRUGS (3)
  1. CARBIDOPA + LEVODOPA TABS 25MG/100MG [Suspect]
     Indication: PARKINSON'S DISEASE
     Route: 048
     Dates: start: 20040120
  2. CORDARONE [Concomitant]
     Dosage: ^SINCE MANY YEARS^
  3. VITAMIN E [Concomitant]

REACTIONS (2)
  - BRADYCARDIA [None]
  - DIZZINESS [None]
